FAERS Safety Report 5069994-8 (Version None)
Quarter: 2006Q3

REPORT INFORMATION
  Report Type: 
  Country: None (occurrence: None)
  Receive Date: 20060731
  Receipt Date: 20060717
  Transmission Date: 20061208
  Serious: Yes (Hospitalization)
  Sender: FDA-Public Use
  Company Number: B0432099A

PATIENT
  Age: 53 Year
  Sex: Male

DRUGS (3)
  1. EPIVIR [Suspect]
     Indication: HIV INFECTION
  2. STAVUDINE [Suspect]
     Indication: HIV INFECTION
  3. NEVIRAPINE [Suspect]
     Indication: HIV INFECTION

REACTIONS (8)
  - ACID FAST BACILLI INFECTION [None]
  - IMMUNE RECONSTITUTION SYNDROME [None]
  - INFLAMMATION [None]
  - LUNG INFECTION [None]
  - LUNG NEOPLASM [None]
  - MYCOBACTERIUM AVIUM COMPLEX INFECTION [None]
  - NEOPLASM PROGRESSION [None]
  - PULMONARY GRANULOMA [None]
